FAERS Safety Report 5692199-4 (Version None)
Quarter: 2008Q2

REPORT INFORMATION
  Report Type: 
  Country: None (occurrence: None)
  Receive Date: 20080402
  Receipt Date: 20080401
  Transmission Date: 20081010
  Serious: Yes (Other)
  Sender: FDA-Public Use
  Company Number: B0514781A

PATIENT
  Age: 21 Month
  Sex: Male

DRUGS (1)
  1. AMOXIL [Suspect]
     Indication: URINARY TRACT INFECTION

REACTIONS (2)
  - AGGRESSION [None]
  - PSYCHOMOTOR HYPERACTIVITY [None]
